FAERS Safety Report 5844259-2 (Version None)
Quarter: 2008Q3

REPORT INFORMATION
  Report Type: 
  Country: None (occurrence: None)
  Receive Date: 20080813
  Receipt Date: 20080801
  Transmission Date: 20090109
  Serious: Yes (Other)
  Sender: FDA-Public Use
  Company Number: US-PFIZER INC-2008066257

PATIENT
  Sex: Female

DRUGS (7)
  1. LYRICA [Suspect]
     Indication: FIBROMYALGIA
  2. GABAPENTIN [Suspect]
     Dates: start: 20070101, end: 20080101
  3. BENAZEPRIL HYDROCHLORIDE [Suspect]
  4. METOPROLOL SUCCINATE [Concomitant]
  5. ASPIRIN [Concomitant]
  6. HYDROCHLOROTHIAZIDE [Concomitant]
  7. CLARITIN [Concomitant]

REACTIONS (5)
  - AGEUSIA [None]
  - ATRIAL FIBRILLATION [None]
  - HYPERCOAGULATION [None]
  - MYOCARDIAL INFARCTION [None]
  - SOMNOLENCE [None]
